FAERS Safety Report 11647025 (Version 2)
Quarter: 2016Q1

REPORT INFORMATION
  Report Type: Spontaneous
  Country: AT (occurrence: AT)
  Receive Date: 20151021
  Receipt Date: 20160107
  Transmission Date: 20160525
  Serious: Yes (Other)
  Sender: FDA-Public Use
  Company Number: AT-ROCHE-1648099

PATIENT
  Age: 22 Year
  Sex: Male

DRUGS (45)
  1. RIVOTRIL [Suspect]
     Active Substance: CLONAZEPAM
     Route: 048
     Dates: start: 20150522, end: 20150526
  2. RIVOTRIL [Suspect]
     Active Substance: CLONAZEPAM
     Route: 048
     Dates: start: 20150831
  3. DEPAKINE CHRONO [Suspect]
     Active Substance: VALPROATE SODIUM
     Dosage: 3500-2000 MG
     Route: 048
     Dates: start: 20150702, end: 20150711
  4. LEPONEX [Suspect]
     Active Substance: CLOZAPINE
     Route: 048
     Dates: start: 20150601, end: 20150608
  5. LEPONEX [Suspect]
     Active Substance: CLOZAPINE
     Route: 048
     Dates: start: 20150806
  6. RIVOTRIL [Suspect]
     Active Substance: CLONAZEPAM
     Route: 048
     Dates: start: 20150710, end: 20150715
  7. LEPONEX [Suspect]
     Active Substance: CLOZAPINE
     Route: 048
     Dates: start: 20150507, end: 20150518
  8. RIVOTRIL [Suspect]
     Active Substance: CLONAZEPAM
     Indication: PRODUCT USED FOR UNKNOWN INDICATION
     Dosage: 4 TO 12MG, AS NECESSARY
     Route: 048
     Dates: start: 20150508, end: 20150521
  9. DEPAKINE CHRONO [Suspect]
     Active Substance: VALPROATE SODIUM
     Route: 048
     Dates: start: 20150711
  10. LEPONEX [Suspect]
     Active Substance: CLOZAPINE
     Indication: PRODUCT USED FOR UNKNOWN INDICATION
     Dosage: 50 TO 450 MG DOSE INCREASING
     Route: 048
     Dates: start: 20150414, end: 20150422
  11. SOLIAN [Suspect]
     Active Substance: AMISULPRIDE
     Route: 048
     Dates: start: 20150601
  12. RIVOTRIL [Suspect]
     Active Substance: CLONAZEPAM
     Route: 048
     Dates: start: 20150717, end: 20150723
  13. RIVOTRIL [Suspect]
     Active Substance: CLONAZEPAM
     Route: 048
     Dates: start: 20150724, end: 20150805
  14. DEPAKINE CHRONO [Suspect]
     Active Substance: VALPROATE SODIUM
     Indication: PRODUCT USED FOR UNKNOWN INDICATION
     Dosage: 1200 -2400 MG DOSE INCREASING
     Route: 048
     Dates: start: 20150413, end: 20150421
  15. DEPAKINE CHRONO [Suspect]
     Active Substance: VALPROATE SODIUM
     Dosage: 2000-3500 MG
     Route: 048
     Dates: start: 20150610, end: 20150701
  16. LEPONEX [Suspect]
     Active Substance: CLOZAPINE
     Route: 048
     Dates: start: 20150423, end: 20150429
  17. LEPONEX [Suspect]
     Active Substance: CLOZAPINE
     Route: 048
     Dates: start: 20150430, end: 20150506
  18. LEPONEX [Suspect]
     Active Substance: CLOZAPINE
     Dosage: 600-1000 MG
     Route: 048
     Dates: start: 20150611, end: 20150629
  19. LEPONEX [Suspect]
     Active Substance: CLOZAPINE
     Route: 048
     Dates: start: 20150630, end: 20150714
  20. TEMESTA (AUSTRIA) [Concomitant]
     Dosage: 12.5MG, FLUCTUATING AS NECESSARY
     Route: 048
     Dates: start: 20150411, end: 20150518
  21. HALDOL [Concomitant]
     Active Substance: HALOPERIDOL
     Route: 048
     Dates: start: 20150519, end: 20150528
  22. LEPONEX [Suspect]
     Active Substance: CLOZAPINE
     Route: 048
     Dates: start: 20150609, end: 20150610
  23. SOLIAN [Suspect]
     Active Substance: AMISULPRIDE
     Dosage: 400 TO 200 MG DOSE REDUCING
     Route: 048
     Dates: start: 20150530, end: 20150531
  24. RIVOTRIL [Suspect]
     Active Substance: CLONAZEPAM
     Route: 048
     Dates: start: 20150615, end: 20150615
  25. RIVOTRIL [Suspect]
     Active Substance: CLONAZEPAM
     Route: 048
     Dates: start: 20150623, end: 20150624
  26. RIVOTRIL [Suspect]
     Active Substance: CLONAZEPAM
     Route: 048
     Dates: start: 20150716, end: 20150716
  27. RIVOTRIL [Suspect]
     Active Substance: CLONAZEPAM
     Dosage: 4-3 MG
     Route: 048
     Dates: start: 20150806, end: 20150830
  28. LEPONEX [Suspect]
     Active Substance: CLOZAPINE
     Dosage: 1100- 1000 MG
     Route: 048
     Dates: start: 20150715, end: 20150730
  29. LEPONEX [Suspect]
     Active Substance: CLOZAPINE
     Route: 048
     Dates: start: 20150805, end: 20150805
  30. RIVOTRIL [Suspect]
     Active Substance: CLONAZEPAM
     Route: 048
     Dates: start: 20150619, end: 20150622
  31. RIVOTRIL [Suspect]
     Active Substance: CLONAZEPAM
     Route: 048
     Dates: start: 20150625, end: 20150709
  32. DEPAKINE CHRONO [Suspect]
     Active Substance: VALPROATE SODIUM
     Dosage: DOSE INCREASING
     Route: 048
     Dates: start: 20150430, end: 20150609
  33. DEPAKINE CHRONO [Suspect]
     Active Substance: VALPROATE SODIUM
     Dosage: 2400-1500 MG
     Route: 048
     Dates: start: 20150422, end: 20150430
  34. LEPONEX [Suspect]
     Active Substance: CLOZAPINE
     Route: 048
     Dates: start: 20150519, end: 20150525
  35. LEPONEX [Suspect]
     Active Substance: CLOZAPINE
     Route: 048
     Dates: start: 20150526, end: 20150531
  36. SOLIAN [Suspect]
     Active Substance: AMISULPRIDE
     Indication: PRODUCT USED FOR UNKNOWN INDICATION
     Route: 048
     Dates: start: 20150529, end: 20150529
  37. CONCOR COR [Concomitant]
     Active Substance: BISOPROLOL FUMARATE
     Route: 048
     Dates: start: 20150806, end: 20150811
  38. TRUXAL [Concomitant]
     Active Substance: CHLORPROTHIXENE
     Route: 048
     Dates: start: 20150424, end: 20150424
  39. RIVOTRIL [Suspect]
     Active Substance: CLONAZEPAM
     Route: 048
     Dates: start: 20150527, end: 20150614
  40. RIVOTRIL [Suspect]
     Active Substance: CLONAZEPAM
     Route: 048
     Dates: start: 20150616, end: 20150616
  41. RIVOTRIL [Suspect]
     Active Substance: CLONAZEPAM
     Route: 048
     Dates: start: 20150617, end: 20150618
  42. LEPONEX [Suspect]
     Active Substance: CLOZAPINE
     Dosage: 950-600MG
     Route: 048
     Dates: start: 20150731, end: 20150804
  43. DYSURGAL (AUSTRIA) [Suspect]
     Active Substance: ATROPINE SULFATE\EPHEDRINE HYDROCHLORIDE\STRYCHNINE NITRATE
     Indication: PRODUCT USED FOR UNKNOWN INDICATION
     Route: 065
     Dates: start: 20150420, end: 20150605
  44. CONCOR COR [Concomitant]
     Active Substance: BISOPROLOL FUMARATE
     Route: 048
     Dates: start: 20150418, end: 20150805
  45. CONCOR COR [Concomitant]
     Active Substance: BISOPROLOL FUMARATE
     Route: 048
     Dates: start: 20150827

REACTIONS (6)
  - Sedation [Recovered/Resolved]
  - Subileus [Recovered/Resolved]
  - Salivary hypersecretion [Recovered/Resolved]
  - Depressed level of consciousness [Unknown]
  - Drug level fluctuating [Unknown]
  - Drug resistance [Unknown]

NARRATIVE: CASE EVENT DATE: 20150605
